FAERS Safety Report 23789152 (Version 1)
Quarter: 2024Q2

REPORT INFORMATION
  Report Type: Spontaneous
  Country: US (occurrence: US)
  Receive Date: 20240426
  Receipt Date: 20240426
  Transmission Date: 20240716
  Serious: Yes (Other)
  Sender: FDA-Public Use
  Company Number: US-BRISTOL-MYERS SQUIBB COMPANY-2024-061838

PATIENT
  Age: 81 Year
  Sex: Male

DRUGS (5)
  1. ELIQUIS [Suspect]
     Active Substance: APIXABAN
     Indication: Idiopathic pulmonary fibrosis
     Route: 048
     Dates: start: 20220425
  2. OFEV [Suspect]
     Active Substance: NINTEDANIB
     Indication: Idiopathic pulmonary fibrosis
     Route: 048
  3. OFEV [Suspect]
     Active Substance: NINTEDANIB
     Route: 048
     Dates: start: 20220425
  4. OFEV [Suspect]
     Active Substance: NINTEDANIB
     Route: 048
     Dates: start: 20220517, end: 202302
  5. OFEV [Suspect]
     Active Substance: NINTEDANIB
     Route: 048

REACTIONS (35)
  - Skin cancer [Recovered/Resolved]
  - Prostate cancer [Unknown]
  - Urine abnormality [Not Recovered/Not Resolved]
  - COVID-19 [Unknown]
  - Diarrhoea [Recovered/Resolved]
  - Nausea [Not Recovered/Not Resolved]
  - Abdominal discomfort [Recovering/Resolving]
  - Skin ulcer [Recovered/Resolved]
  - Constipation [Recovering/Resolving]
  - Weight increased [Not Recovered/Not Resolved]
  - Limb injury [Unknown]
  - Postoperative wound complication [Recovering/Resolving]
  - Gastrointestinal disorder [Unknown]
  - Dyspnoea [Recovering/Resolving]
  - Faeces soft [Unknown]
  - Myalgia [Unknown]
  - Joint swelling [Not Recovered/Not Resolved]
  - Pain [Not Recovered/Not Resolved]
  - Taste disorder [Recovered/Resolved]
  - Somnolence [Not Recovered/Not Resolved]
  - Haemorrhage [Not Recovered/Not Resolved]
  - Contusion [Not Recovered/Not Resolved]
  - Atrial fibrillation [Unknown]
  - Decreased appetite [Unknown]
  - Hepatic enzyme increased [Not Recovered/Not Resolved]
  - Impaired healing [Recovered/Resolved]
  - Fatigue [Unknown]
  - Pain in extremity [Unknown]
  - Cough [Unknown]
  - Sputum increased [Unknown]
  - Drug intolerance [Unknown]
  - Wound infection [Unknown]
  - Sleep deficit [Unknown]
  - Fibrosis [Unknown]
  - Off label use [Unknown]

NARRATIVE: CASE EVENT DATE: 20220101
